FAERS Safety Report 8158725-0 (Version None)
Quarter: 2012Q1

REPORT INFORMATION
  Report Type: 
  Country: None (occurrence: None)
  Receive Date: 20120217
  Receipt Date: 20120206
  Transmission Date: 20120608
  Serious: Yes (Hospitalization)
  Sender: FDA-Public Use
  Company Number: 2011134994

PATIENT
  Age: 72 Year
  Sex: Female

DRUGS (3)
  1. ZOMETA [Concomitant]
  2. DALTEPARIN SODIUM [Suspect]
     Indication: LUNG NEOPLASM MALIGNANT
     Dosage: 5000 IU, UNK
     Dates: start: 20110705
  3. DALTEPARIN SODIUM [Suspect]
     Indication: LUNG NEOPLASM MALIGNANT
     Dosage: 5000 IU, UNK
     Dates: start: 20110614, end: 20110617

REACTIONS (4)
  - MUSCULOSKELETAL PAIN [None]
  - ARTHRALGIA [None]
  - ATRIAL FIBRILLATION [None]
  - HYPOTENSION [None]
